FAERS Safety Report 17552817 (Version 1)
Quarter: 2020Q1

REPORT INFORMATION
  Report Type: Spontaneous
  Country: IT (occurrence: IT)
  Receive Date: 20200318
  Receipt Date: 20200318
  Transmission Date: 20200409
  Serious: Yes (Hospitalization)
  Sender: FDA-Public Use
  Company Number: IT-AUROBINDO-AUR-APL-2020-012844

PATIENT
  Age: 52 Year
  Sex: Female

DRUGS (4)
  1. PIOGLITAZONE TABLET [Interacting]
     Active Substance: PIOGLITAZONE
     Indication: TYPE 2 DIABETES MELLITUS
     Dosage: 1 DOSAGE FORM, ONCE A DAY
     Route: 048
     Dates: start: 20191227
  2. ABASAGLAR [Interacting]
     Active Substance: INSULIN GLARGINE
     Indication: TYPE 2 DIABETES MELLITUS
     Dosage: 15 INTERNATIONAL UNIT, ONCE A DAY
     Route: 058
     Dates: start: 20191227, end: 20200112
  3. VICTOZA [Interacting]
     Active Substance: LIRAGLUTIDE
     Indication: TYPE 2 DIABETES MELLITUS
     Dosage: 1 DOSAGE FORM, EVERY WEEK
     Route: 058
     Dates: start: 20191227
  4. METFORMIN [Suspect]
     Active Substance: METFORMIN HYDROCHLORIDE
     Indication: TYPE 2 DIABETES MELLITUS
     Dosage: 1 DOSAGE FORM
     Dates: start: 20191227

REACTIONS (3)
  - Hypoglycaemia [Recovering/Resolving]
  - Diarrhoea [Recovering/Resolving]
  - Drug interaction [Recovering/Resolving]

NARRATIVE: CASE EVENT DATE: 20200109
